FAERS Safety Report 15886762 (Version 1)
Quarter: 2019Q1

REPORT INFORMATION
  Report Type: Report from Study
  Country: JP (occurrence: JP)
  Receive Date: 20190129
  Receipt Date: 20190129
  Transmission Date: 20190417
  Serious: Yes (Other)
  Sender: FDA-Public Use
  Company Number: JP-AMGEN-JPNCT2019012351

PATIENT
  Age: 70 Year
  Sex: Female

DRUGS (4)
  1. DARBEPOETIN ALFA - KHK [Suspect]
     Active Substance: DARBEPOETIN ALFA
     Indication: NEPHROGENIC ANAEMIA
     Dosage: 15 MUG, QWK
     Route: 065
     Dates: start: 20170131, end: 20170207
  2. DARBEPOETIN ALFA - KHK [Suspect]
     Active Substance: DARBEPOETIN ALFA
     Dosage: 10 MUG, QWK
     Route: 065
     Dates: start: 20170214, end: 20171114
  3. DARBEPOETIN ALFA - KHK [Suspect]
     Active Substance: DARBEPOETIN ALFA
     Dosage: 10 MUG, QWK
     Route: 065
     Dates: start: 20171219, end: 20180109
  4. DARBEPOETIN ALFA - KHK [Suspect]
     Active Substance: DARBEPOETIN ALFA
     Dosage: 15 MUG, QWK
     Route: 065
     Dates: start: 20180116

REACTIONS (5)
  - Hypocalcaemia [Recovered/Resolved]
  - Retinal haemorrhage [Not Recovered/Not Resolved]
  - Rheumatoid arthritis [Not Recovered/Not Resolved]
  - Diarrhoea [Not Recovered/Not Resolved]
  - Macular oedema [Not Recovered/Not Resolved]

NARRATIVE: CASE EVENT DATE: 20170427
